FAERS Safety Report 8690838 (Version 2)
Quarter: 2013Q4

REPORT INFORMATION
  Report Type: Spontaneous
  Country: GB (occurrence: GB)
  Receive Date: 20120729
  Receipt Date: 20131106
  Transmission Date: 20140711
  Serious: Yes (Other)
  Sender: FDA-Public Use
  Company Number: GB-009507513-1207GBR009092

PATIENT
  Age: 78 Year
  Sex: Female

DRUGS (3)
  1. COZAAR 25 MG FILM-COATED TABLETS [Suspect]
     Dosage: 12.5 MG, UNK
     Route: 048
     Dates: start: 20120627, end: 20120630
  2. ASPIRIN [Concomitant]
     Dosage: 75 MG, QD
     Route: 048
     Dates: start: 20120427
  3. BISOPROLOL [Concomitant]
     Indication: HYPERTENSION
     Dosage: 2.5 MG, UNK
     Route: 048
     Dates: start: 20120427

REACTIONS (4)
  - Headache [Recovering/Resolving]
  - Renal pain [Recovering/Resolving]
  - Pain [Recovering/Resolving]
  - Skin discolouration [Recovering/Resolving]
